FAERS Safety Report 20686078 (Version 1)
Quarter: 2022Q2

REPORT INFORMATION
  Report Type: Spontaneous
  Country: US (occurrence: US)
  Receive Date: 20220407
  Receipt Date: 20220407
  Transmission Date: 20220721
  Serious: No
  Sender: FDA-Public Use
  Company Number: US-JAZZ-2021-US-022720

PATIENT
  Age: 52 Year
  Sex: Male

DRUGS (1)
  1. SUNOSI [Suspect]
     Active Substance: SOLRIAMFETOL
     Indication: Product used for unknown indication

REACTIONS (4)
  - Dizziness [Unknown]
  - Nausea [Unknown]
  - Headache [Unknown]
  - Decreased appetite [Unknown]
